FAERS Safety Report 5235633-6 (Version None)
Quarter: 2007Q1

REPORT INFORMATION
  Report Type: 
  Country: None (occurrence: None)
  Receive Date: 20070212
  Receipt Date: 20070207
  Transmission Date: 20070707
  Serious: Yes (Disabling)
  Sender: FDA-Public Use
  Company Number: US-GLAXOSMITHKLINE-A0560595A

PATIENT
  Age: 72 Year
  Sex: Female

DRUGS (9)
  1. ADVAIR DISKUS 100/50 [Suspect]
     Indication: ASTHMA
     Dosage: 1PUFF TWICE PER DAY
     Route: 055
  2. OXYGEN [Concomitant]
  3. NITROGLYCERIN [Concomitant]
     Route: 065
  4. PRILOSEC [Concomitant]
     Route: 065
  5. FAMOTIDINE [Concomitant]
  6. SEIZURE MEDICATION [Concomitant]
  7. GLUCOTROL [Concomitant]
  8. PAIN MEDICATION [Concomitant]
  9. NEBULIZER TREATMENT [Concomitant]

REACTIONS (6)
  - CHOKING [None]
  - DYSPHONIA [None]
  - DYSPNOEA [None]
  - INCREASED UPPER AIRWAY SECRETION [None]
  - MIDDLE INSOMNIA [None]
  - PHARMACEUTICAL PRODUCT COMPLAINT [None]
